FAERS Safety Report 7845152-6 (Version None)
Quarter: 2011Q4

REPORT INFORMATION
  Report Type: 
  Country: None (occurrence: None)
  Receive Date: 20111025
  Receipt Date: 20111019
  Transmission Date: 20120403
  Serious: Yes (Other)
  Sender: FDA-Public Use
  Company Number: CHPA2011US13954

PATIENT
  Age: 32 Year
  Sex: Female

DRUGS (3)
  1. TRANSDERM SCOP [Suspect]
     Dosage: 1 DF, ONCE/SINGLE
     Route: 062
     Dates: start: 20111008, end: 20111009
  2. TRANSDERM SCOP [Suspect]
     Dosage: 1 DF, ONCE/SINGLE
     Route: 062
     Dates: start: 20111008, end: 20111008
  3. TRANSDERM SCOP [Suspect]
     Indication: MOTION SICKNESS
     Dosage: 1 DF, ONCE/SINGLE
     Route: 062
     Dates: start: 20111006, end: 20111008

REACTIONS (9)
  - BLINDNESS [None]
  - CONFUSIONAL STATE [None]
  - NAUSEA [None]
  - HALLUCINATION, VISUAL [None]
  - VOMITING [None]
  - TREMOR [None]
  - HEART RATE INCREASED [None]
  - MYDRIASIS [None]
  - FORMICATION [None]
